FAERS Safety Report 6192352-X (Version None)
Quarter: 2009Q2

REPORT INFORMATION
  Report Type: 
  Country: None (occurrence: None)
  Receive Date: 20090513
  Receipt Date: 20090501
  Transmission Date: 20091009
  Serious: Yes (Hospitalization)
  Sender: FDA-Public Use
  Company Number: 234340K09USA

PATIENT
  Age: 37 Year
  Sex: Female

DRUGS (2)
  1. REBIF [Suspect]
     Indication: MULTIPLE SCLEROSIS
     Dosage: 8.8 MCG, 3 IN 1 WEEKS, SUBCUTANEOUS
     Route: 058
     Dates: start: 20090415, end: 20090422
  2. IBUPROFEN [Concomitant]

REACTIONS (7)
  - ARTHRALGIA [None]
  - BONE PAIN [None]
  - GASTROENTERITIS [None]
  - HYPOAESTHESIA [None]
  - INFLUENZA [None]
  - LIVER FUNCTION TEST ABNORMAL [None]
  - NECK PAIN [None]
